FAERS Safety Report 18968772 (Version 1)
Quarter: 2021Q1

REPORT INFORMATION
  Report Type: Spontaneous
  Country: US (occurrence: US)
  Receive Date: 20210304
  Receipt Date: 20210304
  Transmission Date: 20210420
  Serious: Yes (Other)
  Sender: FDA-Public Use
  Company Number: NVSC2021US046179

PATIENT

DRUGS (1)
  1. LUTATHERA [Suspect]
     Active Substance: LUTETIUM OXODOTREOTIDE LU-177
     Indication: PRODUCT USED FOR UNKNOWN INDICATION
     Dosage: UNK
     Route: 065

REACTIONS (7)
  - Vomiting [Unknown]
  - Oesophagitis [Unknown]
  - Dysphagia [Unknown]
  - Nausea [Unknown]
  - Diverticulitis [Unknown]
  - Duodenitis [Unknown]
  - Malaise [Unknown]
